FAERS Safety Report 5382711-7 (Version None)
Quarter: 2007Q3

REPORT INFORMATION
  Report Type: 
  Country: None (occurrence: None)
  Receive Date: 20070710
  Receipt Date: 20070628
  Transmission Date: 20080115
  Serious: Yes (Hospitalization, Disabling)
  Sender: FDA-Public Use
  Company Number: GB-ROCHE-498247

PATIENT
  Age: 42 Year
  Sex: Female
  Weight: 97 kg

DRUGS (5)
  1. XENICAL [Suspect]
     Indication: OBESITY
     Route: 048
     Dates: start: 20060712, end: 20070414
  2. SALBUTAMOL [Concomitant]
     Route: 055
  3. STEROID NOS [Concomitant]
  4. TRAMADOL HCL [Concomitant]
     Indication: PAIN
     Route: 048
     Dates: start: 20070129
  5. SERETIDE [Concomitant]
     Dosage: THE DOSAGE OF SERETIDE WAS REPORTED AS 250 - NO UNITS.
     Route: 055

REACTIONS (2)
  - ASTHMA [None]
  - LOWER RESPIRATORY TRACT INFECTION [None]
